FAERS Safety Report 14596616 (Version 1)
Quarter: 2018Q1

REPORT INFORMATION
  Report Type: Spontaneous
  Country: DE (occurrence: DE)
  Receive Date: 20180304
  Receipt Date: 20180304
  Transmission Date: 20180509
  Serious: Yes (Disabling)
  Sender: FDA-Public Use
  Company Number: DE-DEXPHARM-20180139

PATIENT
  Age: 85 Year
  Sex: Female
  Weight: 50 kg

DRUGS (7)
  1. PREGABALIN. [Concomitant]
     Active Substance: PREGABALIN
  2. CANDESARTAN HENNING 8MG [Concomitant]
     Dosage: LONG TERM MEDICATION
  3. TRAMABIAN TABLET [Concomitant]
  4. RAMIPRIL 1A 2.5MG [Concomitant]
     Dosage: LONG TERM MEDICATION
  5. EZETROL 10 MG [Concomitant]
     Dosage: LONG TERM MEDICATION
  6. PREDNI-POS 1% [Concomitant]
     Active Substance: PREDNISOLONE ACETATE
     Dosage: LONG TERM MEDICATION
     Route: 047
     Dates: start: 20170724
  7. CHLORHEXAMID FLUID 0.1% [Suspect]
     Active Substance: CHLORHEXIDINE GLUCONATE
     Indication: GINGIVITIS
     Dosage: LONG TERM MEDICATION (2)
     Dates: start: 20170908, end: 20170911

REACTIONS (6)
  - Herpes ophthalmic [Unknown]
  - Oral disorder [Unknown]
  - Hypersensitivity [Unknown]
  - Herpes zoster [Unknown]
  - Pain [Not Recovered/Not Resolved]
  - Oral disorder [None]
